FAERS Safety Report 4712180-9 (Version None)
Quarter: 2005Q3

REPORT INFORMATION
  Report Type: 
  Country: None (occurrence: None)
  Receive Date: 20050712
  Receipt Date: 20050630
  Transmission Date: 20060218
  Serious: Yes (Hospitalization)
  Sender: FDA-Public Use
  Company Number: CH-BRISTOL-MYERS SQUIBB COMPANY-13024831

PATIENT
  Age: 56 Year
  Sex: Female

DRUGS (3)
  1. CETUXIMAB [Suspect]
     Indication: NON-SMALL CELL LUNG CANCER
     Dosage: MOST RECENT INFUSION ON 04-MAR-2005 (4TH INFUSION)
     Route: 042
     Dates: start: 20050203
  2. CISPLATIN [Suspect]
     Indication: NON-SMALL CELL LUNG CANCER
     Dosage: MOST RECENT INFUSION 25-FEB-2005 (2ND INFUSION).
     Route: 042
     Dates: start: 20050203
  3. VINORELBINE [Suspect]
     Indication: NON-SMALL CELL LUNG CANCER
     Dosage: MOST RECENT INFUSION ON 04-MAR-2005 (4TH INFUSION)
     Route: 042
     Dates: start: 20050203

REACTIONS (2)
  - FEBRILE NEUTROPENIA [None]
  - WOUND INFECTION [None]
